FAERS Safety Report 9056861 (Version 1)
Quarter: 2013Q1

REPORT INFORMATION
  Report Type: Report from Study
  Country: JP (occurrence: JP)
  Receive Date: 20130201
  Receipt Date: 20130201
  Transmission Date: 20140127
  Serious: Yes (Other)
  Sender: FDA-Public Use
  Company Number: JP-GLAXOSMITHKLINE-B0860745A

PATIENT
  Age: 51 None
  Sex: Female
  Weight: 50 kg

DRUGS (8)
  1. TYKERB [Suspect]
     Indication: BREAST CANCER
     Route: 048
     Dates: start: 20100513, end: 20100630
  2. TYKERB [Suspect]
     Indication: BREAST CANCER
     Route: 048
     Dates: start: 20100715, end: 20110105
  3. XELODA [Suspect]
     Route: 048
     Dates: start: 20100513, end: 20100630
  4. XELODA [Suspect]
     Route: 048
     Dates: start: 20100715, end: 20100728
  5. XELODA [Suspect]
     Route: 048
     Dates: start: 20100805, end: 20101201
  6. XELODA [Suspect]
     Route: 048
     Dates: start: 20101216, end: 20101229
  7. URSO [Concomitant]
     Indication: LIVER DISORDER
     Route: 048
     Dates: end: 20110104
  8. PYDOXAL [Concomitant]
     Indication: PROPHYLAXIS
     Route: 048
     Dates: start: 20100513, end: 20110104

REACTIONS (14)
  - Osteomyelitis [Not Recovered/Not Resolved]
  - Osteomyelitis [Not Recovered/Not Resolved]
  - Gingivitis [Not Recovered/Not Resolved]
  - Nausea [Recovered/Resolved]
  - Dyspepsia [Recovered/Resolved]
  - Diarrhoea [Recovered/Resolved]
  - Fatigue [Recovered/Resolved]
  - Oedema [Recovered/Resolved]
  - Dizziness [Recovered/Resolved]
  - Decreased appetite [Recovered/Resolved]
  - Palmar-plantar erythrodysaesthesia syndrome [Recovered/Resolved]
  - Hepatic function abnormal [Recovered/Resolved]
  - Hypoaesthesia [Not Recovered/Not Resolved]
  - Decreased appetite [Recovering/Resolving]
